FAERS Safety Report 13383173 (Version 1)
Quarter: 2017Q1

REPORT INFORMATION
  Report Type: Spontaneous
  Country: JP (occurrence: JP)
  Receive Date: 20170329
  Receipt Date: 20170329
  Transmission Date: 20170429
  Serious: Yes (Hospitalization, Other)
  Sender: FDA-Public Use
  Company Number: JP-ELI_LILLY_AND_COMPANY-JP201609006041

PATIENT
  Age: 70 Year
  Sex: Male

DRUGS (2)
  1. ERBITUX [Suspect]
     Active Substance: CETUXIMAB
     Indication: HEAD AND NECK CANCER
     Dosage: 400 MG/M2, UNKNOWN
     Route: 042
     Dates: start: 20160614, end: 20160614
  2. ERBITUX [Suspect]
     Active Substance: CETUXIMAB
     Dosage: 250 MG/M2, UNKNOWN
     Route: 042
     Dates: end: 20160726

REACTIONS (16)
  - Cheilitis [Recovered/Resolved]
  - Blood creatinine increased [Recovered/Resolved]
  - Stomatitis [Recovering/Resolving]
  - Hyperkalaemia [Recovered/Resolved]
  - Dehydration [Unknown]
  - Hypophagia [Unknown]
  - Paronychia [Recovering/Resolving]
  - Pharyngeal inflammation [Recovering/Resolving]
  - Acute kidney injury [Unknown]
  - Blood urea abnormal [Not Recovered/Not Resolved]
  - Dermatitis acneiform [Recovering/Resolving]
  - Inflammation [Unknown]
  - Radiation skin injury [Recovering/Resolving]
  - Dysgeusia [Not Recovered/Not Resolved]
  - Dry mouth [Not Recovered/Not Resolved]
  - Hypomagnesaemia [Recovered/Resolved]

NARRATIVE: CASE EVENT DATE: 20160627
